FAERS Safety Report 24978831 (Version 5)
Quarter: 2025Q2

REPORT INFORMATION
  Report Type: Spontaneous
  Country: US (occurrence: US)
  Receive Date: 20250218
  Receipt Date: 20250627
  Transmission Date: 20250716
  Serious: Yes (Life-Threatening, Hospitalization, Other)
  Sender: UNITED THERAPEUTICS
  Company Number: US-UNITED THERAPEUTICS-UNT-2025-005013

PATIENT
  Sex: Male
  Weight: 86.168 kg

DRUGS (24)
  1. TYVASO [Suspect]
     Active Substance: TREPROSTINIL
     Indication: Pulmonary arterial hypertension
     Dosage: 18 ?G, BID
     Dates: start: 20250210, end: 20250210
  2. TYVASO [Suspect]
     Active Substance: TREPROSTINIL
     Indication: Interstitial lung disease
     Dosage: 18 ?G, TID
     Dates: start: 20250211, end: 202502
  3. TYVASO [Suspect]
     Active Substance: TREPROSTINIL
     Dosage: 18 ?G, QID
     Dates: start: 202502, end: 202502
  4. TYVASO [Suspect]
     Active Substance: TREPROSTINIL
     Dosage: 18 ?G, TID
     Dates: start: 202502, end: 202502
  5. TYVASO [Suspect]
     Active Substance: TREPROSTINIL
     Dosage: 24 ?G, QID
     Dates: start: 202502, end: 202502
  6. TYVASO [Suspect]
     Active Substance: TREPROSTINIL
     Dosage: 18 ?G, TID
     Dates: start: 202502, end: 2025
  7. TYVASO [Suspect]
     Active Substance: TREPROSTINIL
     Dosage: 18 ?G, QID
     Dates: start: 2025, end: 2025
  8. TYVASO [Suspect]
     Active Substance: TREPROSTINIL
     Dosage: 24 ?G, QID
     Dates: start: 2025, end: 2025
  9. TYVASO [Suspect]
     Active Substance: TREPROSTINIL
  10. TYVASO [Suspect]
     Active Substance: TREPROSTINIL
     Dosage: 18 ?G, QID
     Dates: start: 20250522, end: 2025
  11. TYVASO [Suspect]
     Active Substance: TREPROSTINIL
     Dosage: 18 ?G, TID
     Dates: start: 2025
  12. FOLIC ACID [Concomitant]
     Active Substance: FOLIC ACID
     Indication: Product used for unknown indication
  13. ALBUTEROL SULFATE [Concomitant]
     Active Substance: ALBUTEROL SULFATE
     Indication: Cough
  14. HUMIRA [Concomitant]
     Active Substance: ADALIMUMAB
     Indication: Product used for unknown indication
  15. SILDENAFIL CITRATE [Concomitant]
     Active Substance: SILDENAFIL CITRATE
     Indication: Product used for unknown indication
  16. TRELEGY ELLIPTA [Concomitant]
     Active Substance: FLUTICASONE FUROATE\UMECLIDINIUM BROMIDE\VILANTEROL TRIFENATATE
     Indication: Product used for unknown indication
  17. METHOTREXATE [Concomitant]
     Active Substance: METHOTREXATE
     Indication: Product used for unknown indication
  18. OXYGEN [Concomitant]
     Active Substance: OXYGEN
     Indication: Oxygen saturation decreased
  19. OXYGEN [Concomitant]
     Active Substance: OXYGEN
  20. PREDNISONE [Concomitant]
     Active Substance: PREDNISONE
     Indication: Pneumonia
  21. BREO ELLIPTA [Concomitant]
     Active Substance: FLUTICASONE FUROATE\VILANTEROL TRIFENATATE
     Indication: Product used for unknown indication
  22. LITHIUM [Concomitant]
     Active Substance: LITHIUM
     Indication: Product used for unknown indication
  23. SODIUM CHLORIDE [Concomitant]
     Active Substance: SODIUM CHLORIDE
     Indication: Product used for unknown indication
  24. ESCITALOPRAM OXALATE [Concomitant]
     Active Substance: ESCITALOPRAM OXALATE
     Indication: Product used for unknown indication

REACTIONS (18)
  - Respiratory failure [Unknown]
  - Pneumonia bacterial [Not Recovered/Not Resolved]
  - Oxygen saturation decreased [Not Recovered/Not Resolved]
  - Vomiting [Unknown]
  - Retching [Unknown]
  - Productive cough [Not Recovered/Not Resolved]
  - Feeling abnormal [Unknown]
  - Dyspnoea [Unknown]
  - Seasonal allergy [Unknown]
  - Cough [Not Recovered/Not Resolved]
  - Blood pressure increased [Recovering/Resolving]
  - Headache [Not Recovered/Not Resolved]
  - Condition aggravated [Not Recovered/Not Resolved]
  - Cardiac disorder [Not Recovered/Not Resolved]
  - Feeling jittery [Not Recovered/Not Resolved]
  - Dyspnoea exertional [Not Recovered/Not Resolved]
  - Product dose omission issue [Unknown]
  - Inappropriate schedule of product administration [Unknown]

NARRATIVE: CASE EVENT DATE: 20250101
